FAERS Safety Report 22600856 (Version 1)
Quarter: 2023Q2

REPORT INFORMATION
  Report Type: Spontaneous
  Country: US (occurrence: US)
  Receive Date: 20230614
  Receipt Date: 20230614
  Transmission Date: 20230722
  Serious: Yes (Other)
  Sender: FDA-Public Use
  Company Number: US-INTRA-CELLULAR THERAPIES, INC.-2023ICT00806

PATIENT
  Sex: Female
  Weight: 50.794 kg

DRUGS (11)
  1. CAPLYTA [Suspect]
     Active Substance: LUMATEPERONE
     Indication: Bipolar I disorder
     Dosage: AT NIGHT
  2. CAPLYTA [Suspect]
     Active Substance: LUMATEPERONE
     Dosage: IN THE MORNING
  3. WELLBUTRIN [Concomitant]
     Active Substance: BUPROPION HYDROCHLORIDE
  4. TOPAMAX [Concomitant]
     Active Substance: TOPIRAMATE
  5. ELAVIL [Concomitant]
     Active Substance: AMITRIPTYLINE HYDROCHLORIDE
  6. KLONOPIN [Concomitant]
     Active Substance: CLONAZEPAM
     Dosage: 1 MG, AS NEEDED
  7. MELATONIN [Concomitant]
     Active Substance: MELATONIN
  8. COLLAGEN [Concomitant]
     Active Substance: COLLAGEN
  9. VITAMINS NOS [Concomitant]
     Active Substance: VITAMINS
  10. UNSPECIFIED SLEEP SUPPLEMENT [Concomitant]
  11. VITAMIN C [Concomitant]
     Active Substance: ASCORBIC ACID

REACTIONS (8)
  - Alcoholism [Recovering/Resolving]
  - Alopecia [Not Recovered/Not Resolved]
  - Feeling cold [Unknown]
  - Influenza like illness [Unknown]
  - Chills [Unknown]
  - Insomnia [Unknown]
  - Feeling abnormal [Unknown]
  - Feeling of body temperature change [Unknown]
